FAERS Safety Report 13564820 (Version 3)
Quarter: 2017Q3

REPORT INFORMATION
  Report Type: Report from Study
  Country: CA (occurrence: CA)
  Receive Date: 20170519
  Receipt Date: 20170822
  Transmission Date: 20171127
  Serious: Yes (Other)
  Sender: FDA-Public Use
  Company Number: CA-SA-2017SA087115

PATIENT

DRUGS (3)
  1. COPAXONE [Suspect]
     Active Substance: GLATIRAMER ACETATE
     Indication: RELAPSING-REMITTING MULTIPLE SCLEROSIS
     Route: 058
  2. PLACEBO [Suspect]
     Active Substance: UNSPECIFIED INGREDIENT
     Route: 065
  3. TERIFLUNOMIDE [Suspect]
     Active Substance: TERIFLUNOMIDE
     Indication: RELAPSING-REMITTING MULTIPLE SCLEROSIS
     Route: 048

REACTIONS (22)
  - Infection [Unknown]
  - Seborrhoeic dermatitis [Unknown]
  - Headache [Unknown]
  - Depression [Unknown]
  - Fibromyalgia [Unknown]
  - Urinary tract infection [Unknown]
  - Vertigo [Unknown]
  - Alanine aminotransferase increased [Recovered/Resolved]
  - Dyspnoea [Unknown]
  - Fatigue [Unknown]
  - Upper respiratory tract infection [Unknown]
  - Respiratory tract infection viral [Unknown]
  - Amylase increased [Unknown]
  - Lipase increased [Recovered/Resolved]
  - Nasopharyngitis [Unknown]
  - Nausea [Unknown]
  - Herpes zoster [Unknown]
  - Rash [Unknown]
  - Alopecia [Recovered/Resolved]
  - Pain in extremity [Unknown]
  - Interstitial lung disease [Unknown]
  - Diarrhoea [Unknown]
